FAERS Safety Report 17591836 (Version 1)
Quarter: 2020Q1

REPORT INFORMATION
  Report Type: Spontaneous
  Country: FR (occurrence: FR)
  Receive Date: 20200327
  Receipt Date: 20200327
  Transmission Date: 20200409
  Serious: Yes (Hospitalization)
  Sender: FDA-Public Use
  Company Number: FR-MYLANLABS-2020M1031905

PATIENT
  Age: 74 Year
  Sex: Male
  Weight: 78 kg

DRUGS (9)
  1. CLARITHROMYCIN. [Suspect]
     Active Substance: CLARITHROMYCIN
     Indication: MYCOBACTERIAL INFECTION
     Dosage: 1000 MILLIGRAM, QD
     Route: 048
     Dates: start: 20200121, end: 20200211
  2. ELIQUIS [Suspect]
     Active Substance: APIXABAN
     Indication: OEDEMA PERIPHERAL
     Dosage: 10 MILLIGRAM, QD
     Route: 048
     Dates: start: 20200123, end: 20200211
  3. AUGMENTIN [Suspect]
     Active Substance: AMOXICILLIN\CLAVULANATE POTASSIUM
     Indication: DERMO-HYPODERMITIS
     Dosage: POSOLOGIE INCONNUE
     Route: 048
     Dates: start: 20200123, end: 20200211
  4. BACTRIM [Suspect]
     Active Substance: SULFAMETHOXAZOLE\TRIMETHOPRIM
     Indication: MYCOBACTERIAL INFECTION
     Dosage: 2 DOSAGE FORM, QD
     Route: 048
     Dates: start: 20200121, end: 20200211
  5. DEXAMBUTOL [Suspect]
     Active Substance: ETHAMBUTOL HYDROCHLORIDE
     Indication: MYCOBACTERIAL INFECTION
     Dosage: 1500 MILLIGRAM, QD
     Route: 048
     Dates: start: 20200121, end: 20200211
  6. GENVOYA [Concomitant]
     Active Substance: COBICISTAT\ELVITEGRAVIR\EMTRICITABINE\TENOFOVIR ALAFENAMIDE FUMARATE
     Dosage: UNK
  7. MOXIFLOXACIN. [Suspect]
     Active Substance: MOXIFLOXACIN
     Indication: MYCOBACTERIAL INFECTION
     Dosage: 800 MILLIGRAM, QD
     Route: 048
     Dates: start: 20200121, end: 20200211
  8. CRESTOR [Concomitant]
     Active Substance: ROSUVASTATIN CALCIUM
     Dosage: UNK
  9. DARUNAVIR [Concomitant]
     Active Substance: DARUNAVIR
     Dosage: UNK

REACTIONS (2)
  - Erythema [Recovered/Resolved]
  - Blood creatinine increased [Recovered/Resolved]

NARRATIVE: CASE EVENT DATE: 20200209
